FAERS Safety Report 5589228-5 (Version None)
Quarter: 2008Q1

REPORT INFORMATION
  Report Type: 
  Country: None (occurrence: None)
  Receive Date: 20080114
  Receipt Date: 20080109
  Transmission Date: 20080703
  Serious: Yes (Other)
  Sender: FDA-Public Use
  Company Number: PHEH2006US03542

PATIENT
  Age: 62 Year
  Sex: Male
  Weight: 74.829 kg

DRUGS (10)
  1. ZOMETA [Suspect]
     Dosage: UNK, UNK
     Dates: end: 20051101
  2. PERCOCET [Concomitant]
  3. NORVASC [Concomitant]
  4. DOXAZOSIN [Concomitant]
  5. CELEXA [Concomitant]
     Indication: DEPRESSION
  6. ZOCOR [Concomitant]
  7. ACYCLOVIR [Concomitant]
  8. TEVETEN [Concomitant]
  9. OXYCONTIN [Concomitant]
  10. LUPRON [Concomitant]

REACTIONS (18)
  - ANXIETY [None]
  - AORTIC ANEURYSM [None]
  - BONE DISORDER [None]
  - BONE GRAFT [None]
  - BONE OPERATION [None]
  - DECUBITUS ULCER [None]
  - INJURY [None]
  - JOINT INJURY [None]
  - JOINT SURGERY [None]
  - MALIGNANT NEOPLASM PROGRESSION [None]
  - OSTEONECROSIS [None]
  - PAIN [None]
  - PAIN IN JAW [None]
  - RADIATION INJURY [None]
  - SCAN ABNORMAL [None]
  - STENT PLACEMENT [None]
  - SURGERY [None]
  - VASCULAR INSUFFICIENCY [None]
